FAERS Safety Report 5369096-7 (Version None)
Quarter: 2007Q2

REPORT INFORMATION
  Report Type: 
  Country: None (occurrence: None)
  Receive Date: 20070625
  Receipt Date: 20070105
  Transmission Date: 20071010
  Serious: Yes (Other)
  Sender: FDA-Public Use
  Company Number: US-ASTRAZENECA-2007UW00328

PATIENT
  Age: 48 Year
  Sex: Male

DRUGS (4)
  1. CRESTOR [Suspect]
     Route: 048
     Dates: start: 20060417, end: 20070104
  2. PLAVIX [Concomitant]
  3. NEXIUM [Concomitant]
     Route: 048
  4. FOLIC ACID [Concomitant]

REACTIONS (1)
  - BLOOD CREATINE PHOSPHOKINASE INCREASED [None]
